FAERS Safety Report 11625008 (Version 1)
Quarter: 2015Q4

REPORT INFORMATION
  Report Type: Spontaneous
  Country: US (occurrence: US)
  Receive Date: 20151013
  Receipt Date: 20151013
  Transmission Date: 20160304
  Serious: No
  Sender: FDA-Public Use
  Company Number: US-UNICHEM LABORATORIES LIMITED-UCM201412-000211

PATIENT
  Sex: Female

DRUGS (1)
  1. BISOPROLOL FUAMRATE 5 MG TABLET [Suspect]
     Active Substance: BISOPROLOL FUMARATE
     Indication: VENTRICULAR EXTRASYSTOLES
     Route: 048

REACTIONS (1)
  - Drug ineffective for unapproved indication [Unknown]
